FAERS Safety Report 4748697-0 (Version None)
Quarter: 2005Q3

REPORT INFORMATION
  Report Type: 
  Country: None (occurrence: None)
  Receive Date: 20050819
  Receipt Date: 20050805
  Transmission Date: 20060218
  Serious: Yes (Disabling)
  Sender: FDA-Public Use
  Company Number: SEWYE887508AUG05

PATIENT
  Sex: Female

DRUGS (7)
  1. ENBREL [Suspect]
     Indication: PSORIATIC ARTHROPATHY
     Route: 058
     Dates: start: 20050430, end: 20050517
  2. ZYRTEC [Concomitant]
     Dosage: 10 MG WHEN NEEDED
     Route: 048
  3. ZOCOR [Concomitant]
     Route: 048
  4. ACETASALICYLIC ACID [Concomitant]
     Route: 048
  5. NORVASC [Concomitant]
     Route: 048
  6. PERSANTIN [Concomitant]
     Route: 048
  7. MAGNESIUM OXIDE [Concomitant]

REACTIONS (3)
  - NAIL DYSTROPHY [None]
  - PUSTULAR PSORIASIS [None]
  - RASH PSORIAFORM [None]
